FAERS Safety Report 14588042 (Version 2)
Quarter: 2018Q1

REPORT INFORMATION
  Report Type: Report from Study
  Country: US (occurrence: US)
  Receive Date: 20180301
  Receipt Date: 20180328
  Transmission Date: 20180509
  Serious: Yes (Hospitalization)
  Sender: FDA-Public Use
  Company Number: US-JNJFOC-20180237923

PATIENT
  Age: 43 Year
  Sex: Female

DRUGS (16)
  1. VITAMIN D3 [Concomitant]
     Active Substance: CHOLECALCIFEROL
  2. HUMALOG [Concomitant]
     Active Substance: INSULIN LISPRO
  3. ALBUTEROL SULFATE. [Concomitant]
     Active Substance: ALBUTEROL SULFATE
  4. IMBRUVICA [Suspect]
     Active Substance: IBRUTINIB
     Indication: CHRONIC LYMPHOCYTIC LEUKAEMIA
     Route: 048
     Dates: start: 20160525
  5. CARVEDILOL. [Concomitant]
     Active Substance: CARVEDILOL
  6. BUPROPION HCL [Concomitant]
     Active Substance: BUPROPION HYDROCHLORIDE
  7. PREDNISOLONE ACETATE. [Concomitant]
     Active Substance: PREDNISOLONE ACETATE
  8. ISOSORBIDE MONONITRATE. [Concomitant]
     Active Substance: ISOSORBIDE MONONITRATE
  9. LEXAPRO [Concomitant]
     Active Substance: ESCITALOPRAM OXALATE
  10. LANTUS [Concomitant]
     Active Substance: INSULIN GLARGINE
  11. ASPIRIN. [Concomitant]
     Active Substance: ASPIRIN
  12. HYDRALAZINE HCL [Concomitant]
     Active Substance: HYDRALAZINE HYDROCHLORIDE
  13. FLONASE [Concomitant]
     Active Substance: FLUTICASONE PROPIONATE
  14. LASIX [Concomitant]
     Active Substance: FUROSEMIDE
  15. FORADIL [Concomitant]
     Active Substance: FORMOTEROL FUMARATE
  16. IMBRUVICA [Suspect]
     Active Substance: IBRUTINIB
     Indication: CHRONIC LYMPHOCYTIC LEUKAEMIA
     Route: 048
     Dates: start: 20160524

REACTIONS (4)
  - Cardiac failure congestive [Unknown]
  - Feeding disorder [Unknown]
  - Insomnia [Unknown]
  - Hypoglycaemia [Unknown]

NARRATIVE: CASE EVENT DATE: 201802
